FAERS Safety Report 8596313-2 (Version None)
Quarter: 2012Q3

REPORT INFORMATION
  Report Type: 
  Country: None (occurrence: None)
  Receive Date: 20120815
  Receipt Date: 20120813
  Transmission Date: 20120928
  Serious: Yes (Hospitalization)
  Sender: FDA-Public Use
  Company Number: US-ELI_LILLY_AND_COMPANY-US201207001930

PATIENT
  Sex: Male
  Weight: 81.633 kg

DRUGS (7)
  1. FISH OIL [Concomitant]
  2. METOPROLOL TARTRATE [Concomitant]
  3. OMEPRAZOLE [Concomitant]
  4. COQ10 [Concomitant]
  5. EFFIENT [Suspect]
     Dosage: UNK
     Dates: start: 20110804
  6. ASPIRIN [Concomitant]
  7. PITAVASTATIN [Concomitant]

REACTIONS (1)
  - ACUTE MYOCARDIAL INFARCTION [None]
